FAERS Safety Report 4316015-8 (Version None)
Quarter: 2004Q1

REPORT INFORMATION
  Report Type: 
  Country: None (occurrence: None)
  Receive Date: 20040311
  Receipt Date: 20040301
  Transmission Date: 20041129
  Serious: Yes (Disabling)
  Sender: FDA-Public Use
  Company Number: WAES 0403COL00010

PATIENT
  Age: 35 Year
  Sex: Male

DRUGS (3)
  1. DIDANOSINE [Concomitant]
  2. CRIXIVAN [Suspect]
     Indication: RETROVIRAL INFECTION
     Route: 048
     Dates: start: 20000101, end: 20021001
  3. ZIDOVUDINE [Concomitant]

REACTIONS (2)
  - HAEMATURIA [None]
  - HYDRONEPHROSIS [None]
